FAERS Safety Report 25537853 (Version 1)
Quarter: 2025Q3

REPORT INFORMATION
  Report Type: Report from Study
  Country: KR (occurrence: KR)
  Receive Date: 20250710
  Receipt Date: 20250710
  Transmission Date: 20251021
  Serious: Yes (Hospitalization)
  Sender: BAXTER
  Company Number: KR-BAXTER-2024BAX023432

PATIENT
  Age: 74 Year
  Sex: Female
  Weight: 65.8 kg

DRUGS (29)
  1. CYCLOPHOSPHAMIDE [Suspect]
     Active Substance: CYCLOPHOSPHAMIDE
     Indication: Diffuse large B-cell lymphoma
     Dosage: 1200 MG, EVERY 3 WK
     Route: 042
     Dates: start: 20240416
  2. DOXORUBICIN [Suspect]
     Active Substance: DOXORUBICIN
     Indication: Diffuse large B-cell lymphoma
     Dosage: 80 MG, EVERY 3 WK
     Route: 042
     Dates: start: 20240416
  3. EPCORITAMAB [Suspect]
     Active Substance: EPCORITAMAB
     Indication: Diffuse large B-cell lymphoma
     Route: 058
     Dates: start: 20240416
  4. RITUXIMAB [Suspect]
     Active Substance: RITUXIMAB
     Indication: Diffuse large B-cell lymphoma
     Dosage: 600 MG, EVERY 3 WK
     Route: 042
     Dates: start: 20240416
  5. PREDNISONE [Suspect]
     Active Substance: PREDNISONE
     Indication: Diffuse large B-cell lymphoma
     Route: 048
     Dates: start: 20240416
  6. VINCRISTINE [Suspect]
     Active Substance: VINCRISTINE
     Indication: Diffuse large B-cell lymphoma
     Dosage: 2 MG, EVERY 3 WK
     Route: 042
     Dates: start: 20240416
  7. Sarlotan plus [Concomitant]
     Indication: Hypertension
     Dosage: 0.5 DOSAGE FORM, QD
     Route: 065
     Dates: start: 2013
  8. Hyper er [Concomitant]
     Indication: Hypertension
     Dosage: 5 MG, QD
     Route: 065
     Dates: start: 2013
  9. Nafurol [Concomitant]
     Indication: Tinnitus
     Dosage: 1 DOSAGE FORM, QD
     Route: 065
     Dates: start: 202307
  10. Feroba you sr [Concomitant]
     Indication: Anaemia
     Dosage: 256 MG, QD
     Route: 065
     Dates: start: 20240724
  11. Rovasro [Concomitant]
     Indication: Dyslipidaemia
     Dosage: 5 MG, QD
     Route: 065
     Dates: start: 2013
  12. Mosapia [Concomitant]
     Indication: Gastrooesophageal reflux prophylaxis
     Dosage: 1 DOSAGE FORM, QD
     Route: 065
     Dates: start: 202307
  13. SEROQUEL [Concomitant]
     Active Substance: QUETIAPINE FUMARATE
     Indication: Insomnia
     Route: 065
     Dates: start: 20240412
  14. ATIVAN [Concomitant]
     Active Substance: LORAZEPAM
     Indication: Premedication
     Dosage: 1 MG, EVERY 3 WK
     Route: 065
     Dates: start: 20240416
  15. Akynzeo [Concomitant]
     Indication: Premedication
     Dosage: 1 DOSAGE FORM, EVERY 3 WK
     Route: 065
     Dates: start: 20240416
  16. Setopen [Concomitant]
     Indication: Chemotherapy side effect prophylaxis
     Dosage: 650 MG, 1X A WEEK
     Route: 065
     Dates: start: 20240709
  17. FOLIC ACID [Concomitant]
     Active Substance: FOLIC ACID
     Indication: Prophylaxis
     Dosage: 1 MG, QD
     Route: 065
     Dates: start: 20240416
  18. SULFAMETHOXAZOLE\TRIMETHOPRIM [Concomitant]
     Active Substance: SULFAMETHOXAZOLE\TRIMETHOPRIM
     Indication: Prophylaxis
     Dosage: 480 MG, QD
     Route: 065
     Dates: start: 20240416
  19. NEULASTA [Concomitant]
     Active Substance: PEGFILGRASTIM
     Indication: Prophylaxis
     Dosage: 6 MG, EVERY 3 WK
     Route: 065
     Dates: start: 20240417
  20. Cletamin [Concomitant]
     Indication: Prophylaxis
     Route: 065
     Dates: start: 20240425
  21. Esomezol [Concomitant]
     Indication: Gastrooesophageal reflux prophylaxis
     Dosage: 20 MG, QD
     Route: 065
     Dates: start: 20240426
  22. Gelma [Concomitant]
     Indication: Gastrooesophageal reflux prophylaxis
     Route: 065
     Dates: start: 20240426
  23. NYSTATIN [Concomitant]
     Active Substance: NYSTATIN
     Indication: Prophylaxis
     Route: 065
     Dates: start: 20240716
  24. Codenal [Concomitant]
     Indication: Prophylaxis
     Route: 065
     Dates: start: 20240729
  25. Peniramin [Concomitant]
     Indication: Chemotherapy side effect prophylaxis
     Dosage: 4 MG, 1X A WEEK
     Route: 065
     Dates: start: 20240709
  26. LEVODROPROPIZINE [Concomitant]
     Active Substance: LEVODROPROPIZINE
     Indication: Prophylaxis
     Dosage: 60 MG, QD
     Route: 065
     Dates: start: 20240625
  27. VITAMINS [Concomitant]
     Active Substance: VITAMINS
     Indication: Prophylaxis
     Route: 065
     Dates: start: 20240807
  28. URSODIOL [Concomitant]
     Active Substance: URSODIOL
     Indication: Prophylaxis
     Route: 065
     Dates: start: 20240806
  29. Dulackhan easy [Concomitant]
     Indication: Constipation prophylaxis
     Dosage: 30 ML, QD
     Route: 065
     Dates: start: 20240518

REACTIONS (1)
  - Cytomegalovirus viraemia [Recovered/Resolved]

NARRATIVE: CASE EVENT DATE: 20240806
